FAERS Safety Report 8281625 (Version 6)
Quarter: 2012Q4

REPORT INFORMATION
  Report Type: 
  Country: JP (occurrence: JP)
  Receive Date: 20111209
  Receipt Date: 20120913
  Transmission Date: 20130627
  Serious: Yes (Hospitalization, Other)
  Sender: FDA-Public Use
  Company Number: JP-JNJFOC-20111201572

PATIENT
  Age: 71 Year
  Sex: Male
  Weight: 66 kg

DRUGS (11)
  1. TRAMCET [Suspect]
     Indication: PAIN
     Dosage: one dose per day
     Route: 048
     Dates: start: 20110810, end: 20110910
  2. TRAMCET [Suspect]
     Indication: PAIN
     Dosage: 2 doses per day
     Route: 048
     Dates: start: 20110910, end: 20111122
  3. TRAMCET [Suspect]
     Indication: PAIN
     Dosage: 1 per day
     Route: 048
     Dates: start: 20111123, end: 20111126
  4. TRAMCET [Suspect]
     Indication: PAIN
     Dosage: 1 per day
     Route: 048
     Dates: start: 20111127, end: 20111130
  5. TRAMCET [Suspect]
     Indication: PAIN
     Dosage: 1 per day
     Route: 048
     Dates: start: 201112
  6. MOSAPRIDE CITRATE [Suspect]
     Indication: PRODUCT USED FOR UNKNOWN INDICATION
     Route: 065
  7. PARIET [Concomitant]
     Dosage: 1 per 1 day
     Route: 048
  8. MUCOSTA [Concomitant]
     Dosage: 1 per day
     Route: 048
  9. NAUZELIN [Concomitant]
     Indication: PAIN
     Dosage: 1 per day
     Route: 065
     Dates: start: 20110810, end: 20110921
  10. SELTOUCH [Concomitant]
     Indication: PAIN
     Route: 062
     Dates: start: 20050407, end: 20110921
  11. LOXONIN [Concomitant]
     Indication: PAIN
     Route: 062
     Dates: start: 20111005, end: 20120131

REACTIONS (4)
  - Mallory-Weiss syndrome [Recovered/Resolved]
  - Jaundice [Unknown]
  - Dizziness [Recovered/Resolved]
  - Nausea [Recovered/Resolved]
